FAERS Safety Report 12241988 (Version 2)
Quarter: 2016Q2

REPORT INFORMATION
  Report Type: Spontaneous
  Country: US (occurrence: US)
  Receive Date: 20160406
  Receipt Date: 20160422
  Transmission Date: 20160815
  Serious: Yes (Hospitalization)
  Sender: FDA-Public Use
  Company Number: US-AEGERION-AEGR002493

PATIENT
  Age: 16 Year
  Sex: Female
  Weight: 45.81 kg

DRUGS (49)
  1. PERIDEX [Concomitant]
     Active Substance: CHLORHEXIDINE GLUCONATE
     Indication: PRODUCT USED FOR UNKNOWN INDICATION
     Dosage: 15 ML, BID SWISH AND SPIT
     Route: 048
  2. NEURONTIN [Concomitant]
     Active Substance: GABAPENTIN
     Indication: PRODUCT USED FOR UNKNOWN INDICATION
     Dosage: 400 MG, QD AT HS, MAY INCREASE BY 100 MG EVERY OTHER WEEK TO MAX OF 900 MG
     Route: 048
  3. HYDROCORTISONE. [Concomitant]
     Active Substance: HYDROCORTISONE
     Indication: PRODUCT USED FOR UNKNOWN INDICATION
     Dosage: UNK
     Route: 061
  4. GLUCAGON. [Concomitant]
     Active Substance: GLUCAGON
     Indication: DIABETES MELLITUS
     Dosage: INJECT 1 MG INTO MUSCLE ONCE PRN
  5. GLUCAGON. [Concomitant]
     Active Substance: GLUCAGON
     Indication: CONGENITAL GENERALISED LIPODYSTROPHY
  6. PRECOSE [Concomitant]
     Active Substance: ACARBOSE
     Indication: LIPODYSTROPHY ACQUIRED
  7. VENTOLIN [Concomitant]
     Active Substance: ALBUTEROL SULFATE
     Indication: REACTIVE AIRWAYS DYSFUNCTION SYNDROME
     Dosage: 2 PUFF, EVERY 6 HOURS PRN
     Route: 055
  8. DIPHENHYDRAMINE HYDROCHLORIDE W/ZINC ACETATE [Concomitant]
     Indication: DERMATOMYOSITIS
     Dosage: APPLY TO AFFECTED AREA BID, PRN
     Route: 061
  9. PRILOSEC [Concomitant]
     Active Substance: OMEPRAZOLE MAGNESIUM
     Indication: PRODUCT USED FOR UNKNOWN INDICATION
     Dosage: 20 MG, QD
     Route: 048
  10. ACTOS [Concomitant]
     Active Substance: PIOGLITAZONE HYDROCHLORIDE
     Indication: LIPODYSTROPHY ACQUIRED
  11. DIPHENHYDRAMINE HCL [Concomitant]
     Active Substance: DIPHENHYDRAMINE HYDROCHLORIDE
     Indication: PRODUCT USED FOR UNKNOWN INDICATION
     Route: 048
  12. FERROUS SULFATE. [Concomitant]
     Active Substance: FERROUS SULFATE
     Indication: SUPPLEMENTATION THERAPY
     Dosage: 324 MG, QD
     Route: 048
  13. ZANTAC [Concomitant]
     Active Substance: RANITIDINE HYDROCHLORIDE
     Indication: CONGENITAL GENERALISED LIPODYSTROPHY
     Dosage: 150 MG, QD
     Route: 048
  14. MYALEPT [Suspect]
     Active Substance: METRELEPTIN
     Indication: LIPODYSTROPHY ACQUIRED
     Dosage: 2.5 MG, BID
     Route: 058
     Dates: start: 20140822
  15. LOFIBRA [Concomitant]
     Active Substance: FENOFIBRATE
     Indication: CONGENITAL GENERALISED LIPODYSTROPHY
     Dosage: 134 MG, QD
     Route: 048
  16. ZESTRIL [Concomitant]
     Active Substance: LISINOPRIL
     Indication: PROTEINURIA
     Dosage: 5 MG, QD
     Route: 048
  17. ZESTRIL [Concomitant]
     Active Substance: LISINOPRIL
     Indication: CONGENITAL GENERALISED LIPODYSTROPHY
  18. DULERA [Concomitant]
     Active Substance: FORMOTEROL FUMARATE DIHYDRATE\MOMETASONE FUROATE
     Indication: ASTHMA
     Dosage: 2 PUFF, QD
     Route: 055
  19. VITAMIN D3 [Concomitant]
     Active Substance: CHOLECALCIFEROL
     Indication: SUPPLEMENTATION THERAPY
     Dosage: 5000 IU, BID
     Route: 048
  20. FOLATE [Concomitant]
     Active Substance: FOLATE SODIUM
     Indication: SUPPLEMENTATION THERAPY
     Dosage: 1 MG, QD
     Route: 048
  21. BACITRACIN ZINC. [Concomitant]
     Active Substance: BACITRACIN ZINC
     Indication: PRODUCT USED FOR UNKNOWN INDICATION
     Dosage: APPLY TO AFFECTED AREA, BID
     Route: 061
  22. ACTOS [Concomitant]
     Active Substance: PIOGLITAZONE HYDROCHLORIDE
     Indication: DIABETES MELLITUS
     Dosage: 30 MG, QD
     Route: 048
  23. GLUCOPHAGE [Suspect]
     Active Substance: METFORMIN HYDROCHLORIDE
     Indication: DIABETES MELLITUS
     Dosage: 1000 MG, BID
     Route: 048
  24. ZESTRIL [Concomitant]
     Active Substance: LISINOPRIL
     Indication: DIABETES MELLITUS
  25. TENORMIN [Concomitant]
     Active Substance: ATENOLOL
     Indication: ELECTROCARDIOGRAM QT PROLONGED
     Dosage: 25 MG, QD
     Route: 048
  26. FOLATE [Concomitant]
     Active Substance: FOLATE SODIUM
     Indication: DERMATOMYOSITIS
  27. INSULIN HUMULIN REGULAR [Concomitant]
     Indication: CONGENITAL GENERALISED LIPODYSTROPHY
  28. TYLENOL [Concomitant]
     Active Substance: ACETAMINOPHEN
     Indication: PRODUCT USED FOR UNKNOWN INDICATION
     Dosage: 500 MG EVERY 6 HOURS PRN
     Route: 048
  29. MYALEPT [Suspect]
     Active Substance: METRELEPTIN
     Indication: CONGENITAL GENERALISED LIPODYSTROPHY
  30. GLUCOPHAGE [Suspect]
     Active Substance: METFORMIN HYDROCHLORIDE
     Indication: LIPODYSTROPHY ACQUIRED
  31. GLUCOPHAGE [Suspect]
     Active Substance: METFORMIN HYDROCHLORIDE
     Indication: CONGENITAL GENERALISED LIPODYSTROPHY
  32. PRECOSE [Concomitant]
     Active Substance: ACARBOSE
     Indication: DIABETES MELLITUS
     Dosage: 50 -100 MG TID WITH MEALS
     Route: 048
  33. ZESTRIL [Concomitant]
     Active Substance: LISINOPRIL
     Indication: HYPERTRIGLYCERIDAEMIA
  34. OMEGA 3 FISH OIL [Concomitant]
     Active Substance: FISH OIL\OMEGA-3 FATTY ACIDS
     Indication: SUPPLEMENTATION THERAPY
     Dosage: 1000 MG, QD
     Route: 048
  35. COLACE [Concomitant]
     Active Substance: DOCUSATE SODIUM
     Indication: PRODUCT USED FOR UNKNOWN INDICATION
     Dosage: 100 MG, BID
     Route: 048
  36. NIZORAL [Concomitant]
     Active Substance: KETOCONAZOLE
     Indication: DERMATOMYOSITIS
     Dosage: APPLY TO AFFECTED AREA, QD
     Route: 061
  37. MOBIC [Concomitant]
     Active Substance: MELOXICAM
     Indication: PRODUCT USED FOR UNKNOWN INDICATION
     Dosage: 7.5 MG, QD
     Route: 048
  38. ARISTOCORT [Concomitant]
     Active Substance: TRIAMCINOLONE DIACETATE
     Indication: PRODUCT USE ISSUE
     Dosage: APPLY TO AFFECTED AREA PRN
  39. METHOTREXATE [Suspect]
     Active Substance: METHOTREXATE
     Indication: DERMATOMYOSITIS
     Dosage: UNK
     Dates: end: 2016
  40. LOFIBRA [Concomitant]
     Active Substance: FENOFIBRATE
     Indication: HYPERTRIGLYCERIDAEMIA
  41. MAGNESIUM OXIDE. [Concomitant]
     Active Substance: MAGNESIUM OXIDE
     Indication: ELECTROCARDIOGRAM QT PROLONGED
     Dosage: 400 MG, BID
     Route: 048
  42. FERROUS SULFATE. [Concomitant]
     Active Substance: FERROUS SULFATE
     Indication: DERMATOMYOSITIS
  43. LOFIBRA [Concomitant]
     Active Substance: FENOFIBRATE
     Indication: DIABETES MELLITUS
  44. INSULIN HUMULIN REGULAR [Concomitant]
     Indication: DIABETES MELLITUS
     Dosage: 40 U FOR FULL MEAL, 20 U FOR HALF MEAL, 20 U FOR GLUCOSE }  250 AT HS
  45. AMLACTIN [Concomitant]
     Active Substance: AMMONIUM LACTATE
     Indication: DERMATOMYOSITIS
     Dosage: APPLY TO AFFECTED AREA
     Route: 061
  46. FLONASE [Concomitant]
     Active Substance: FLUTICASONE PROPIONATE
     Indication: RHINITIS ALLERGIC
     Dosage: 2 DF, QD
     Route: 045
  47. ACTOS [Concomitant]
     Active Substance: PIOGLITAZONE HYDROCHLORIDE
     Indication: CONGENITAL GENERALISED LIPODYSTROPHY
  48. SILVADENE [Concomitant]
     Active Substance: SILVER SULFADIAZINE
     Indication: PRODUCT USE ISSUE
     Dosage: 1% CREAM, BID APPLY TO AFFECTED AREA
     Route: 061
  49. NIZORAL [Concomitant]
     Active Substance: KETOCONAZOLE
     Indication: DERMATOMYOSITIS
     Dosage: APPLY TO SCALP, THEN SHAMPOO ONCE DAILY PRN

REACTIONS (16)
  - Abdominal pain upper [Recovered/Resolved]
  - Dyspnoea [Recovered/Resolved]
  - Ovarian cyst [Unknown]
  - Nausea [Recovered/Resolved]
  - Pancreatitis acute [Recovered/Resolved]
  - Diabetes mellitus [Recovering/Resolving]
  - Tachycardia [Recovered/Resolved]
  - Blood potassium decreased [Unknown]
  - Hypertriglyceridaemia [Recovering/Resolving]
  - Polycystic ovaries [Unknown]
  - Abdominal distension [Recovering/Resolving]
  - Blood glucose increased [Unknown]
  - Blood phosphorus increased [Unknown]
  - Abdominal pain [Recovered/Resolved]
  - Lactic acidosis [Recovered/Resolved]
  - Vomiting [Recovered/Resolved]

NARRATIVE: CASE EVENT DATE: 201603
